FAERS Safety Report 18546275 (Version 1)
Quarter: 2020Q4

REPORT INFORMATION
  Report Type: Spontaneous
  Country: HU (occurrence: HU)
  Receive Date: 20201125
  Receipt Date: 20201125
  Transmission Date: 20210114
  Serious: Yes (Other)
  Sender: FDA-Public Use
  Company Number: HU-ASTRAZENECA-2020SF52364

PATIENT
  Age: 68 Year
  Sex: Male

DRUGS (11)
  1. GOSERELIN [Concomitant]
     Active Substance: GOSERELIN
     Indication: HORMONE THERAPY
     Dosage: UNK
     Route: 065
     Dates: start: 20190505
  2. NEBIVOLOL. [Suspect]
     Active Substance: NEBIVOLOL
     Indication: PRODUCT USED FOR UNKNOWN INDICATION
     Dosage: UNK
     Route: 065
  3. ROSUVASTATIN. [Suspect]
     Active Substance: ROSUVASTATIN
     Indication: PRODUCT USED FOR UNKNOWN INDICATION
     Dosage: UNK
     Route: 048
  4. EPIRUBICIN [Suspect]
     Active Substance: EPIRUBICIN
     Indication: INVASIVE DUCTAL BREAST CARCINOMA
     Dosage: UNK
     Route: 065
     Dates: start: 20181130, end: 20190429
  5. RIBOCICLIB. [Suspect]
     Active Substance: RIBOCICLIB
     Indication: HORMONE THERAPY
     Dosage: 600 MG, QD
     Route: 065
     Dates: start: 201907
  6. CYCLOPHOSPHAMIDE. [Suspect]
     Active Substance: CYCLOPHOSPHAMIDE
     Indication: INVASIVE DUCTAL BREAST CARCINOMA
     Dosage: UNK
     Route: 065
     Dates: start: 20181130, end: 20190429
  7. DOCETAXEL. [Suspect]
     Active Substance: DOCETAXEL
     Indication: INVASIVE DUCTAL BREAST CARCINOMA
     Dosage: UNK
     Route: 065
     Dates: start: 20181130, end: 20190429
  8. PERINDOPRIL [Suspect]
     Active Substance: PERINDOPRIL
     Indication: PRODUCT USED FOR UNKNOWN INDICATION
     Dosage: UNK
     Route: 065
  9. METFORMIN [Suspect]
     Active Substance: METFORMIN HYDROCHLORIDE
     Indication: PRODUCT USED FOR UNKNOWN INDICATION
     Dosage: UNK
     Route: 065
  10. LETROZOLE. [Suspect]
     Active Substance: LETROZOLE
     Indication: HORMONE THERAPY
     Dosage: UNK
     Route: 065
     Dates: start: 20190505
  11. ASPIRIN. [Concomitant]
     Active Substance: ASPIRIN
     Indication: PRODUCT USED FOR UNKNOWN INDICATION
     Dosage: UNK
     Route: 065

REACTIONS (15)
  - Breast pain [Recovering/Resolving]
  - Hepatic mass [Unknown]
  - Hypertension [Unknown]
  - Weight increased [Unknown]
  - Metastasis [Not Recovered/Not Resolved]
  - Chest injury [Recovering/Resolving]
  - Lymphadenopathy [Unknown]
  - Neutropenia [Unknown]
  - Metastases to lung [Recovering/Resolving]
  - Inappropriate schedule of product administration [Unknown]
  - Adrenal adenoma [Unknown]
  - Hot flush [Unknown]
  - Tumour ulceration [Recovering/Resolving]
  - Type 2 diabetes mellitus [Unknown]
  - Limb discomfort [Unknown]

NARRATIVE: CASE EVENT DATE: 2015
